FAERS Safety Report 22346180 (Version 1)
Quarter: 2023Q2

REPORT INFORMATION
  Report Type: Other
  Country: CN (occurrence: CN)
  Receive Date: 20230519
  Receipt Date: 20230519
  Transmission Date: 20230722
  Serious: Yes (Other)
  Sender: FDA-Public Use
  Company Number: CN-DECIPHERA PHARMACEUTICALS LLC-2022CN000881

PATIENT
  Age: 55 Year
  Sex: Female

DRUGS (9)
  1. AYVAKIT [Suspect]
     Active Substance: AVAPRITINIB
     Indication: Gastrointestinal stromal tumour
     Dosage: 150 MILLIGRAM, QD
     Route: 065
     Dates: start: 2021, end: 20220111
  2. AYVAKIT [Suspect]
     Active Substance: AVAPRITINIB
     Dosage: 300 MILLIGRAM, QD
     Route: 065
     Dates: start: 20211012
  3. AYVAKIT [Suspect]
     Active Substance: AVAPRITINIB
     Dosage: 100 MILLIGRAM, QD
     Route: 065
     Dates: start: 20220112
  4. SUNITINIB [Suspect]
     Active Substance: SUNITINIB
     Indication: Gastrointestinal stromal tumour
     Dosage: 25 MILLIGRAM, QD
     Route: 048
     Dates: start: 20210914, end: 202110
  5. SUNITINIB [Suspect]
     Active Substance: SUNITINIB
     Dosage: 37.5 MILLIGRAM, QD
     Route: 065
     Dates: start: 20220112
  6. QINLOCK [Suspect]
     Active Substance: RIPRETINIB
     Indication: Gastrointestinal stromal tumour
     Dosage: 150 MILLIGRAM, QD
     Route: 048
     Dates: start: 20210810
  7. QINLOCK [Suspect]
     Active Substance: RIPRETINIB
     Dosage: 100 MILLIGRAM, QD
     Route: 048
     Dates: start: 2021, end: 20220111
  8. QINLOCK [Suspect]
     Active Substance: RIPRETINIB
     Route: 065
  9. QINLOCK [Suspect]
     Active Substance: RIPRETINIB
     Route: 065

REACTIONS (9)
  - Retinal haemorrhage [Unknown]
  - Metastases to abdominal cavity [Unknown]
  - Disease progression [Unknown]
  - Palmar-plantar erythrodysaesthesia syndrome [Unknown]
  - Alopecia [Unknown]
  - Gingival bleeding [Unknown]
  - Pyrexia [Unknown]
  - Off label use [Unknown]
  - Treatment failure [Unknown]
